FAERS Safety Report 9017181 (Version 2)
Quarter: 2013Q2

REPORT INFORMATION
  Report Type: Spontaneous
  Country: US (occurrence: US)
  Receive Date: 20130117
  Receipt Date: 20130410
  Transmission Date: 20140414
  Serious: Yes (Hospitalization, Other)
  Sender: FDA-Public Use
  Company Number: US-BAYER-2013-003888

PATIENT
  Age: 32 Year
  Sex: Female
  Weight: 105.67 kg

DRUGS (12)
  1. YASMIN [Suspect]
     Dosage: UNK
     Dates: start: 2010, end: 2011
  2. YAZ [Suspect]
     Dosage: UNK
     Dates: start: 2010, end: 2011
  3. OCELLA [Suspect]
     Dosage: UNK
     Dates: start: 2010, end: 2011
  4. DEPAKOTE [Concomitant]
  5. PHENERGAN [Concomitant]
  6. FLEXERIL [Concomitant]
  7. ADDERALL [Concomitant]
  8. NORCO [Concomitant]
  9. TOPAMAX [Concomitant]
  10. PRISTIQ [Concomitant]
  11. PALIPERIDONE [Concomitant]
  12. CLONIDINE [Concomitant]

REACTIONS (12)
  - Deep vein thrombosis [None]
  - Thrombosis [None]
  - Abdominal pain [None]
  - Superior sagittal sinus thrombosis [None]
  - Transverse sinus thrombosis [None]
  - Cerebral venous thrombosis [None]
  - Injury [None]
  - Pain [None]
  - General physical health deterioration [None]
  - Emotional distress [None]
  - Anxiety [None]
  - Pain [None]
